FAERS Safety Report 17917137 (Version 1)
Quarter: 2020Q2

REPORT INFORMATION
  Report Type: Spontaneous
  Country: US (occurrence: US)
  Receive Date: 20200619
  Receipt Date: 20200619
  Transmission Date: 20200714
  Serious: Yes (Hospitalization, Other)
  Sender: FDA-Public Use
  Company Number: US-PFIZER INC-2020237784

PATIENT
  Age: 53 Year
  Sex: Male
  Weight: 92.53 kg

DRUGS (1)
  1. VIAGRA [Suspect]
     Active Substance: SILDENAFIL CITRATE
     Indication: ERECTILE DYSFUNCTION
     Dosage: 100 MG, ONE TABLET AS NEEDED

REACTIONS (10)
  - Infection [Unknown]
  - Depression [Unknown]
  - Craniocerebral injury [Recovered/Resolved with Sequelae]
  - Migraine [Unknown]
  - Anxiety [Unknown]
  - Fall [Unknown]
  - Anaemia [Unknown]
  - Autoimmune disorder [Unknown]
  - Cardiac disorder [Unknown]
  - Blood pressure abnormal [Unknown]

NARRATIVE: CASE EVENT DATE: 20191118
